FAERS Safety Report 9376187 (Version 2)
Quarter: 2013Q3

REPORT INFORMATION
  Report Type: Report from Study
  Country: GB (occurrence: GB)
  Receive Date: 20130701
  Receipt Date: 20130709
  Transmission Date: 20140515
  Serious: Yes (Hospitalization)
  Sender: FDA-Public Use
  Company Number: GB-AMGEN-GBRCT2013045333

PATIENT
  Age: 5 Year
  Sex: Male
  Weight: 19.8 kg

DRUGS (5)
  1. ETANERCEPT [Suspect]
     Indication: PRODUCT USED FOR UNKNOWN INDICATION
     Dosage: 10 MG, 2X/WEEK
     Route: 065
     Dates: start: 20100914
  2. ETANERCEPT [Suspect]
     Dosage: UNK
     Route: 065
     Dates: start: 20101118
  3. PIROXICAM [Concomitant]
     Dosage: UNK
  4. METHOTREXATE [Concomitant]
     Dosage: UNK
     Dates: start: 20090901
  5. FOLIC ACID [Concomitant]
     Dosage: UNK UNK, UNK

REACTIONS (2)
  - Osteomyelitis [Unknown]
  - Juvenile idiopathic arthritis [Unknown]
